FAERS Safety Report 4834396-3 (Version None)
Quarter: 2005Q4

REPORT INFORMATION
  Report Type: 
  Country: None (occurrence: None)
  Receive Date: 20051114
  Receipt Date: 20051031
  Transmission Date: 20060501
  Serious: Yes (Hospitalization, Other)
  Sender: FDA-Public Use
  Company Number: 2005089107

PATIENT
  Age: 69 Year
  Sex: Male
  Weight: 104.3273 kg

DRUGS (2)
  1. ZITHROMAX [Suspect]
     Indication: LOCALISED INFECTION
     Dosage: 250 MG (250 MG, 1 IN 1 D), ORAL
     Route: 048
     Dates: start: 20030927, end: 20040901
  2. NORVASC [Suspect]
     Indication: HYPERTENSION

REACTIONS (6)
  - ALOPECIA [None]
  - CELLULITIS [None]
  - DIARRHOEA [None]
  - OSTEOMYELITIS [None]
  - PRURITUS [None]
  - TINNITUS [None]
